FAERS Safety Report 19715608 (Version 5)
Quarter: 2022Q2

REPORT INFORMATION
  Report Type: Report from Study
  Country: US (occurrence: US)
  Receive Date: 20210818
  Receipt Date: 20220603
  Transmission Date: 20220721
  Serious: No
  Sender: FDA-Public Use
  Company Number: NVSC2021US180173

PATIENT
  Age: 58 Year
  Sex: Female
  Weight: 63.05 kg

DRUGS (2)
  1. KESIMPTA [Suspect]
     Active Substance: OFATUMUMAB
     Indication: Product used for unknown indication
     Dosage: 0.4 ML, QMO
     Route: 030
     Dates: start: 20210801
  2. GILENYA [Suspect]
     Active Substance: FINGOLIMOD HYDROCHLORIDE
     Indication: Multiple sclerosis
     Dosage: 0.5 MG, QD
     Route: 048
     Dates: start: 2011, end: 20210731

REACTIONS (3)
  - Headache [Recovering/Resolving]
  - Injection site urticaria [Unknown]
  - Magnetic resonance imaging thoracic abnormal [Unknown]

NARRATIVE: CASE EVENT DATE: 20210801
